FAERS Safety Report 5070465-3 (Version None)
Quarter: 2006Q3

REPORT INFORMATION
  Report Type: 
  Country: None (occurrence: None)
  Receive Date: 20060804
  Receipt Date: 20060511
  Transmission Date: 20061208
  Serious: Yes (Hospitalization)
  Sender: FDA-Public Use
  Company Number: AU-ABBOTT-06P-008-0333034-00

PATIENT
  Sex: Female

DRUGS (4)
  1. HUMIRA [Suspect]
     Indication: CROHN'S DISEASE
     Route: 058
     Dates: end: 20050609
  2. HUMIRA [Suspect]
     Route: 058
     Dates: start: 20051228, end: 20060112
  3. HUMIRA [Suspect]
     Route: 058
  4. MERCAPTOPURINE [Concomitant]
     Indication: CROHN'S DISEASE
     Route: 048
     Dates: start: 20010101

REACTIONS (4)
  - BRONCHOPULMONARY ASPERGILLOSIS [None]
  - DEHYDRATION [None]
  - HYPOMAGNESAEMIA [None]
  - MALNUTRITION [None]
